FAERS Safety Report 7830585-4 (Version None)
Quarter: 2011Q4

REPORT INFORMATION
  Report Type: 
  Country: None (occurrence: None)
  Receive Date: 20111021
  Receipt Date: 20111018
  Transmission Date: 20120403
  Serious: Yes (Other)
  Sender: FDA-Public Use
  Company Number: AU-PFIZER INC-2011249190

PATIENT
  Sex: Female

DRUGS (2)
  1. PSEUDOEPHEDRINE HCL [Suspect]
     Dosage: UNK
  2. LYRICA [Suspect]
     Dosage: 75 MG, 2X/DAY
     Dates: start: 20110401, end: 20111013

REACTIONS (4)
  - ANXIETY [None]
  - IRRITABILITY [None]
  - POST-TRAUMATIC STRESS DISORDER [None]
  - PAIN [None]
